FAERS Safety Report 10064518 (Version 1)
Quarter: 2014Q2

REPORT INFORMATION
  Report Type: Spontaneous
  Country: JP (occurrence: None)
  Receive Date: 20140404
  Receipt Date: 20140404
  Transmission Date: 20141212
  Serious: Yes (Disabling, Other)
  Sender: FDA-Public Use
  Company Number: ABR_01503_2014

PATIENT
  Age: 64 Year
  Sex: Male

DRUGS (1)
  1. GLIDAEL (GLIADEL-CARMUSTINE) 7.7 MG [Suspect]
     Indication: MALIGNANT GLIOMA
     Dosage: 61.6 MG, 1X, [61.6 MG, ONCE] INTRACEREBRAL)
     Dates: start: 20130705

REACTIONS (5)
  - Cerebral haemorrhage [None]
  - Implant site haemorrhage [None]
  - Pneumocephalus [None]
  - Brain oedema [None]
  - Convulsion [None]
